FAERS Safety Report 8025043-0 (Version None)
Quarter: 2012Q1

REPORT INFORMATION
  Report Type: 
  Country: None (occurrence: None)
  Receive Date: 20120105
  Receipt Date: 20111229
  Transmission Date: 20120608
  Serious: Yes (Hospitalization, Disabling, Other)
  Sender: FDA-Public Use
  Company Number: US-MERCK-1105USA00583

PATIENT
  Age: 58 Year
  Sex: Female
  Weight: 95 kg

DRUGS (3)
  1. FOSAMAX [Suspect]
     Indication: OSTEOPENIA
     Route: 048
     Dates: start: 19990101, end: 20071119
  2. CENTRUM [Concomitant]
     Route: 065
  3. ALENDRONATE SODIUM [Suspect]
     Indication: OSTEOPENIA
     Route: 048
     Dates: start: 20080604, end: 20080901

REACTIONS (49)
  - FEMUR FRACTURE [None]
  - ADRENAL MASS [None]
  - BLOOD GLUCOSE DECREASED [None]
  - BLOOD CHOLESTEROL INCREASED [None]
  - INFECTION [None]
  - HYPERLIPIDAEMIA [None]
  - NOCTURIA [None]
  - SPINAL OSTEOARTHRITIS [None]
  - LUMBAR RADICULOPATHY [None]
  - CHEST PAIN [None]
  - FRACTURE NONUNION [None]
  - CONSTIPATION [None]
  - SPINAL DISORDER [None]
  - RADICULOPATHY [None]
  - OSTEOARTHRITIS [None]
  - DYSPNOEA [None]
  - CHEST X-RAY ABNORMAL [None]
  - CHEST DISCOMFORT [None]
  - DIABETES MELLITUS INADEQUATE CONTROL [None]
  - HYPOACUSIS [None]
  - DIZZINESS [None]
  - SINUS BRADYCARDIA [None]
  - WHEEZING [None]
  - URINARY TRACT INFECTION [None]
  - CORONARY ARTERY DISEASE [None]
  - ATRIAL FIBRILLATION [None]
  - BLOOD CHOLESTEROL ABNORMAL [None]
  - HYPERTENSION [None]
  - FATIGUE [None]
  - GOITRE [None]
  - INTERVERTEBRAL DISC DEGENERATION [None]
  - HYPERHIDROSIS [None]
  - HYPOAESTHESIA [None]
  - IODINE ALLERGY [None]
  - BURSITIS [None]
  - ATELECTASIS [None]
  - GALLBLADDER DISORDER [None]
  - OSTEOPOROSIS [None]
  - ASTHENIA [None]
  - THYROID NEOPLASM [None]
  - TINNITUS [None]
  - OEDEMA PERIPHERAL [None]
  - NEUROPATHY PERIPHERAL [None]
  - CATARACT [None]
  - MYOCARDIAL INFARCTION [None]
  - FALL [None]
  - TOOTH EXTRACTION [None]
  - LUMBAR SPINAL STENOSIS [None]
  - NASOPHARYNGITIS [None]
